FAERS Safety Report 5518507-2 (Version None)
Quarter: 2007Q4

REPORT INFORMATION
  Report Type: 
  Country: None (occurrence: None)
  Receive Date: 20071115
  Receipt Date: 20071105
  Transmission Date: 20080405
  Serious: Yes (Death)
  Sender: FDA-Public Use
  Company Number: CH-PFIZER INC-2007071792

PATIENT

DRUGS (1)
  1. SUTENT [Suspect]
     Indication: SARCOMA

REACTIONS (1)
  - TRACHEAL STENOSIS [None]
